FAERS Safety Report 4447813-8 (Version None)
Quarter: 2004Q3

REPORT INFORMATION
  Report Type: 
  Country: None (occurrence: None)
  Receive Date: 20040913
  Receipt Date: 20040830
  Transmission Date: 20050211
  Serious: Yes (Life-Threatening)
  Sender: FDA-Public Use
  Company Number: HQWYE763001SEP04

PATIENT
  Sex: Female
  Weight: 60 kg

DRUGS (2)
  1. ENBREL [Suspect]
     Indication: DRUG USE FOR UNKNOWN INDICATION
     Route: 058
     Dates: start: 20020801
  2. ORAL CONTRACEPTIVE NOS [Suspect]
     Dosage: UNKNOWN
     Route: 048

REACTIONS (2)
  - RENAL VEIN THROMBOSIS [None]
  - VENA CAVA THROMBOSIS [None]
